FAERS Safety Report 15048525 (Version 1)
Quarter: 2018Q2

REPORT INFORMATION
  Report Type: Spontaneous
  Country: CA (occurrence: CA)
  Receive Date: 20180622
  Receipt Date: 20180622
  Transmission Date: 20180711
  Serious: Yes (Other)
  Sender: FDA-Public Use
  Company Number: CA-APOTEX-2018AP015820

PATIENT
  Age: 76 Year
  Sex: Male

DRUGS (4)
  1. DEXILANT [Concomitant]
     Active Substance: DEXLANSOPRAZOLE
     Indication: PRODUCT USED FOR UNKNOWN INDICATION
     Route: 065
  2. DOMPERIDONE [Concomitant]
     Active Substance: DOMPERIDONE
     Indication: HYPOTENSION
     Route: 065
  3. LEVODOPA [Suspect]
     Active Substance: LEVODOPA
     Indication: PARKINSON^S DISEASE
     Dosage: 25 MG, 2 PILLS 3 TIMES DAILY
     Route: 065
     Dates: start: 2013, end: 20180130
  4. LEVODOPA, CARBIDOPA [Suspect]
     Active Substance: CARBIDOPA\LEVODOPA
     Indication: PARKINSON^S DISEASE
     Dosage: 50 MG, ONCE DAILY AT BEDTIME
     Route: 065
     Dates: start: 2013, end: 20180130

REACTIONS (5)
  - Gastrointestinal surgery [Unknown]
  - Dyskinesia [Recovered/Resolved]
  - Constipation [Recovered/Resolved]
  - Colostomy [Not Recovered/Not Resolved]
  - Blood pressure fluctuation [Recovered/Resolved]

NARRATIVE: CASE EVENT DATE: 20151023
